FAERS Safety Report 14709390 (Version 1)
Quarter: 2018Q2

REPORT INFORMATION
  Report Type: Spontaneous
  Country: AU (occurrence: AU)
  Receive Date: 20180403
  Receipt Date: 20180403
  Transmission Date: 20180711
  Serious: Yes (Hospitalization)
  Sender: FDA-Public Use
  Company Number: AU-ACTELION-A-CH2018-169531

PATIENT
  Age: 23 Year
  Sex: Male

DRUGS (2)
  1. OPSUMIT [Suspect]
     Active Substance: MACITENTAN
     Indication: HEART DISEASE CONGENITAL
     Dosage: 10 MG, QD
     Route: 048
     Dates: start: 20160913
  2. SILDENAFIL. [Suspect]
     Active Substance: SILDENAFIL
     Indication: HEART DISEASE CONGENITAL
     Dosage: 25 MG, TID
     Route: 048
     Dates: start: 20160913

REACTIONS (1)
  - Pneumonia [Unknown]
